FAERS Safety Report 16552760 (Version 6)
Quarter: 2020Q4

REPORT INFORMATION
  Report Type: Report from Study
  Country: US (occurrence: US)
  Receive Date: 20190710
  Receipt Date: 20201030
  Transmission Date: 20210113
  Serious: Yes (Death, Other)
  Sender: FDA-Public Use
  Company Number: PHHY2019US153226

PATIENT
  Age: 2 Year
  Sex: Male

DRUGS (3)
  1. KYMRIAH [Suspect]
     Active Substance: TISAGENLECLEUCEL
     Indication: B-CELL TYPE ACUTE LEUKAEMIA
     Dosage: UNK, ONCE/SINGLE
     Route: 041
     Dates: start: 20181226
  2. FLUDARABINE [Concomitant]
     Active Substance: FLUDARABINE PHOSPHATE
     Indication: CHEMOTHERAPY
     Dosage: UNK
     Route: 065
  3. CYCLOPHOSPHAMIDE. [Concomitant]
     Active Substance: CYCLOPHOSPHAMIDE
     Indication: CHEMOTHERAPY
     Dosage: UNK
     Route: 065

REACTIONS (15)
  - Pyrexia [Unknown]
  - Haemoglobin decreased [Unknown]
  - B-cell type acute leukaemia [Fatal]
  - Malignant neoplasm progression [Fatal]
  - Seizure [Unknown]
  - Neutrophil count decreased [Recovered/Resolved]
  - Hypogammaglobulinaemia [Unknown]
  - Clostridium difficile infection [Unknown]
  - Platelet count decreased [Recovered/Resolved]
  - Neurotoxicity [Recovered/Resolved]
  - Hypotension [Unknown]
  - Haematocrit decreased [Unknown]
  - White blood cell count decreased [Recovering/Resolving]
  - Cytokine release syndrome [Recovered/Resolved]
  - Tremor [Unknown]
